FAERS Safety Report 16049314 (Version 2)
Quarter: 2019Q1

REPORT INFORMATION
  Report Type: Spontaneous
  Country: MA (occurrence: MA)
  Receive Date: 20190307
  Receipt Date: 20190319
  Transmission Date: 20190418
  Serious: Yes (Other)
  Sender: FDA-Public Use
  Company Number: MA-PFM-2019-02409

PATIENT

DRUGS (2)
  1. NAVELBIN [Suspect]
     Active Substance: VINORELBINE TARTRATE
     Indication: NON-SMALL CELL LUNG CANCER STAGE IIIB
     Dosage: 25 MG/M2, DAY 1 AND 8
     Route: 042
  2. CISPLATIN. [Suspect]
     Active Substance: CISPLATIN
     Indication: NON-SMALL CELL LUNG CANCER
     Dosage: 75 MG/M2 DAY 1 REPEATED EVERY 3 WEEKS
     Route: 065

REACTIONS (1)
  - Chondrosarcoma [Recovered/Resolved]
